FAERS Safety Report 6260156-5 (Version None)
Quarter: 2009Q3

REPORT INFORMATION
  Report Type: 
  Country: None (occurrence: None)
  Receive Date: 20090708
  Receipt Date: 20090629
  Transmission Date: 20100115
  Serious: Yes (Other)
  Sender: FDA-Public Use
  Company Number: A0794328A

PATIENT
  Age: 51 Year
  Sex: Male

DRUGS (2)
  1. FLOVENT [Suspect]
     Dosage: 2PUFF TWICE PER DAY
     Route: 055
     Dates: start: 20090410
  2. PROAIR HFA [Suspect]

REACTIONS (15)
  - ADRENAL INSUFFICIENCY [None]
  - AMNESIA [None]
  - CATARACT [None]
  - DEHYDRATION [None]
  - DYSPHONIA [None]
  - HYPOACUSIS [None]
  - HYPOAESTHESIA [None]
  - INTRAOCULAR PRESSURE INCREASED [None]
  - OCULAR DISCOMFORT [None]
  - PERFORMANCE STATUS DECREASED [None]
  - PHARYNGEAL DISORDER [None]
  - PHARYNGEAL HYPOAESTHESIA [None]
  - PHARYNGEAL OEDEMA [None]
  - VISION BLURRED [None]
  - VISUAL IMPAIRMENT [None]
